FAERS Safety Report 10446465 (Version 1)
Quarter: 2014Q3

REPORT INFORMATION
  Report Type: Not Available
  Country: US (occurrence: US)
  Receive Date: 20140911
  Receipt Date: 20140911
  Transmission Date: 20150326
  Serious: No
  Sender: FDA-Public Use
  Company Number: US-LUPIN PHARMACEUTICALS INC.-E2B_00002331

PATIENT
  Age: 71 Year
  Sex: Male
  Weight: 81.72 kg

DRUGS (3)
  1. FISH OIL [Concomitant]
     Active Substance: FISH OIL
     Indication: ROUTINE HEALTH MAINTENANCE
  2. LATANOPROST 0.005% OPTHALMIC DROPS [Concomitant]
     Indication: GLAUCOMA
     Dosage: 2 DROPS (1 EACH EYE)
     Route: 047
  3. AMLODIPINE BESYLATE TABLETS 5 MG [Suspect]
     Active Substance: AMLODIPINE BESYLATE
     Indication: HYPERTENSION
     Dosage: 5MG
     Dates: start: 20140703, end: 20140713

REACTIONS (3)
  - Rash papular [Recovering/Resolving]
  - Pruritus [Recovering/Resolving]
  - Asthenia [Recovered/Resolved]

NARRATIVE: CASE EVENT DATE: 20140704
